FAERS Safety Report 19829683 (Version 1)
Quarter: 2021Q3

REPORT INFORMATION
  Report Type: Spontaneous
  Country: US (occurrence: US)
  Receive Date: 20210914
  Receipt Date: 20210914
  Transmission Date: 20211014
  Serious: Yes (Other)
  Sender: FDA-Public Use
  Company Number: None

PATIENT
  Age: 36 Year
  Sex: Male

DRUGS (1)
  1. BARICITINIB. [Suspect]
     Active Substance: BARICITINIB
     Route: 048
     Dates: start: 20210829, end: 20210902

REACTIONS (3)
  - Therapy cessation [None]
  - Alanine aminotransferase increased [None]
  - Aspartate aminotransferase increased [None]

NARRATIVE: CASE EVENT DATE: 20210903
